FAERS Safety Report 6030043-6 (Version None)
Quarter: 2009Q1

REPORT INFORMATION
  Report Type: 
  Country: None (occurrence: None)
  Receive Date: 20090105
  Receipt Date: 20090105
  Transmission Date: 20090719
  Serious: Yes (Hospitalization)
  Sender: FDA-Public Use
  Company Number: None

PATIENT
  Age: 71 Year
  Sex: Male

DRUGS (9)
  1. LUCENTIS [Suspect]
     Indication: CHOROIDAL NEOVASCULARISATION
     Dosage: 0.5 MG INTRAVITREAL INJ
     Dates: start: 20080910
  2. LUCENTIS [Suspect]
     Indication: CHOROIDAL NEOVASCULARISATION
     Dosage: 0.5 MG INTRAVITREAL INJ
     Dates: start: 20080924
  3. ASPIRIN [Concomitant]
  4. ATENOLOL [Concomitant]
  5. ALTACE [Concomitant]
  6. ZOCOR [Concomitant]
  7. NITROGLYCERIN SA [Concomitant]
  8. LEVOXYL [Concomitant]
  9. PLAVIX [Concomitant]

REACTIONS (5)
  - CEREBRAL HAEMORRHAGE [None]
  - DIPLOPIA [None]
  - DIZZINESS [None]
  - EMBOLIC STROKE [None]
  - GAIT DISTURBANCE [None]
